FAERS Safety Report 8244308-0 (Version None)
Quarter: 2012Q1

REPORT INFORMATION
  Report Type: 
  Country: None (occurrence: None)
  Receive Date: 20120329
  Receipt Date: 20120323
  Transmission Date: 20120608
  Serious: Yes (Other)
  Sender: FDA-Public Use
  Company Number: US-TEVA-329891USA

PATIENT
  Sex: Female

DRUGS (4)
  1. COPAXONE [Suspect]
     Indication: MULTIPLE SCLEROSIS
     Dosage: 20 MILLIGRAM;
     Route: 058
     Dates: start: 20110203
  2. DULOXETIME HYDROCHLORIDE [Concomitant]
     Route: 048
  3. ARIPIPRAZOLE [Concomitant]
     Route: 048
  4. ANTIHYPERTENSIVES [Concomitant]
     Indication: HYPERTENSION
     Route: 048

REACTIONS (7)
  - DYSPNOEA [None]
  - MYOCARDIAL INFARCTION [None]
  - CHEST PAIN [None]
  - BLOOD PRESSURE INCREASED [None]
  - ELECTROCARDIOGRAM CHANGE [None]
  - DEPRESSION [None]
  - FALL [None]
